FAERS Safety Report 10427421 (Version 1)
Quarter: 2014Q3

REPORT INFORMATION
  Report Type: Spontaneous
  Country: CN (occurrence: CN)
  Receive Date: 20140903
  Receipt Date: 20140903
  Transmission Date: 20150326
  Serious: Yes (Other)
  Sender: FDA-Public Use
  Company Number: PHHY2014CN106427

PATIENT
  Age: 79 Year
  Sex: Female

DRUGS (8)
  1. FRUSEMIDE [Concomitant]
     Active Substance: FUROSEMIDE
  2. GABAPENTIN. [Suspect]
     Active Substance: GABAPENTIN
     Indication: POST HERPETIC NEURALGIA
     Dosage: 300 MG, UNK
  3. ISOSORBIDE MONONITRATE. [Concomitant]
     Active Substance: ISOSORBIDE MONONITRATE
  4. SODIUM BICARBONATE. [Concomitant]
     Active Substance: SODIUM BICARBONATE
  5. AMLODIPINE [Concomitant]
     Active Substance: AMLODIPINE BESYLATE
  6. PARACETAMOL [Concomitant]
     Active Substance: ACETAMINOPHEN
  7. CALCIUM SUPPLEMENTS [Concomitant]
     Active Substance: CALCIUM
  8. CLONAZEPAM. [Concomitant]
     Active Substance: CLONAZEPAM

REACTIONS (6)
  - Cerebral atrophy [Recovered/Resolved]
  - Dyskinesia [Recovered/Resolved]
  - Overdose [Unknown]
  - Somnolence [Recovered/Resolved]
  - Abasia [Recovered/Resolved]
  - Myoclonus [Recovered/Resolved]
